FAERS Safety Report 26096400 (Version 1)
Quarter: 2025Q4

REPORT INFORMATION
  Report Type: Report from Study
  Country: US (occurrence: US)
  Receive Date: 20251127
  Receipt Date: 20251127
  Transmission Date: 20260117
  Serious: Yes (Death)
  Sender: BIOGEN
  Company Number: US-BIOGEN-2092609

PATIENT
  Age: 71 Year
  Sex: Female

DRUGS (1)
  1. VUMERITY [Suspect]
     Active Substance: DIROXIMEL FUMARATE
     Indication: Multiple sclerosis

REACTIONS (1)
  - Death [Fatal]

NARRATIVE: CASE EVENT DATE: 20250501
